FAERS Safety Report 5995436-1 (Version None)
Quarter: 2008Q4

REPORT INFORMATION
  Report Type: 
  Country: None (occurrence: None)
  Receive Date: 20081212
  Receipt Date: 20081201
  Transmission Date: 20090506
  Serious: Yes (Hospitalization)
  Sender: FDA-Public Use
  Company Number: GB-TEVA-181959ISR

PATIENT
  Age: 61 Year
  Sex: Male

DRUGS (3)
  1. AMOXICILLIN + CLAVULANATE POTASSIUM [Suspect]
     Indication: LUNG DISORDER
     Route: 048
  2. PENICILLIN G [Suspect]
     Indication: LUNG DISORDER
  3. CIPROFLOXACIN HCL [Concomitant]

REACTIONS (4)
  - CARDIAC FAILURE [None]
  - DRUG INEFFECTIVE [None]
  - ENDOCARDITIS [None]
  - STOMATOCOCCAL INFECTION [None]
